FAERS Safety Report 16073107 (Version 2)
Quarter: 2020Q1

REPORT INFORMATION
  Report Type: Spontaneous
  Country: US (occurrence: US)
  Receive Date: 20190314
  Receipt Date: 20200109
  Transmission Date: 20200409
  Serious: Yes (Death)
  Sender: FDA-Public Use
  Company Number: US-VIFOR (INTERNATIONAL) INC.-VIT-2019-02183

PATIENT
  Sex: Female

DRUGS (23)
  1. CENTRUM SILVER [Concomitant]
     Active Substance: MINERALS\VITAMINS
  2. LACTULOSE. [Concomitant]
     Active Substance: LACTULOSE
  3. LANTUS [Concomitant]
     Active Substance: INSULIN GLARGINE
  4. PROBIOTIC [Concomitant]
     Active Substance: PROBIOTICS NOS
  5. TRULICITY [Concomitant]
     Active Substance: DULAGLUTIDE
  6. VITAMIN E [Concomitant]
     Active Substance: .ALPHA.-TOCOPHEROL
  7. HYDRALAZINE HCL [Concomitant]
     Active Substance: HYDRALAZINE HYDROCHLORIDE
  8. ASPIRIN LOW DOSE [Concomitant]
     Active Substance: ASPIRIN
     Dosage: LOW DOSE
  9. PLAVIX [Concomitant]
     Active Substance: CLOPIDOGREL BISULFATE
  10. CITRACAL PLUS D3 [Concomitant]
  11. CRESTOR [Concomitant]
     Active Substance: ROSUVASTATIN CALCIUM
  12. NEURONTIN [Concomitant]
     Active Substance: GABAPENTIN
  13. REQUIP [Concomitant]
     Active Substance: ROPINIROLE HYDROCHLORIDE
  14. BENADRYL ALLERGY [Concomitant]
     Active Substance: DIPHENHYDRAMINE HYDROCHLORIDE
  15. LOVAZA [Concomitant]
     Active Substance: OMEGA-3-ACID ETHYL ESTERS
  16. PROTONIX [Concomitant]
     Active Substance: PANTOPRAZOLE SODIUM
  17. VELTASSA [Suspect]
     Active Substance: PATIROMER
     Indication: HYPERKALAEMIA
     Route: 048
     Dates: start: 20160311
  18. SODIUM POLYSTYRENE SULFONATE. [Concomitant]
     Active Substance: SODIUM POLYSTYRENE SULFONATE
  19. WELLBUTRIN SR [Concomitant]
     Active Substance: BUPROPION HYDROCHLORIDE
  20. ATENOLOL. [Concomitant]
     Active Substance: ATENOLOL
  21. CYMBALTA [Concomitant]
     Active Substance: DULOXETINE HYDROCHLORIDE
  22. HUMALOG [Concomitant]
     Active Substance: INSULIN LISPRO
  23. XANAX [Concomitant]
     Active Substance: ALPRAZOLAM

REACTIONS (3)
  - Product dose omission [Unknown]
  - Urinary tract infection [Unknown]
  - Death [Fatal]
